FAERS Safety Report 5077244-1 (Version None)
Quarter: 2006Q3

REPORT INFORMATION
  Report Type: 
  Country: None (occurrence: None)
  Receive Date: 20060810
  Receipt Date: 20060109
  Transmission Date: 20061208
  Serious: No
  Sender: FDA-Public Use
  Company Number: US-GLAXOSMITHKLINE-A0588618A

PATIENT
  Age: 31 Year
  Sex: Female
  Weight: 151.4 kg

DRUGS (2)
  1. PAXIL [Suspect]
     Indication: DEPRESSION
     Route: 048
     Dates: start: 20041122, end: 20050426
  2. TRAZODONE HCL [Suspect]
     Indication: SLEEP DISORDER
     Dosage: 100MG AT NIGHT
     Route: 048
     Dates: start: 20060324, end: 20060426

REACTIONS (3)
  - DRUG INEFFECTIVE [None]
  - DYSPNOEA [None]
  - SEDATION [None]
